FAERS Safety Report 25794548 (Version 2)
Quarter: 2025Q3

REPORT INFORMATION
  Report Type: Spontaneous
  Country: CN (occurrence: CN)
  Receive Date: 20250912
  Receipt Date: 20250918
  Transmission Date: 20251021
  Serious: Yes (Hospitalization, Other)
  Sender: BOEHRINGER INGELHEIM
  Company Number: CN-BoehringerIngelheim-2025-BI-093776

PATIENT
  Age: 65 Year
  Sex: Male
  Weight: 72.000 kg

DRUGS (1)
  1. LINAGLIPTIN [Suspect]
     Active Substance: LINAGLIPTIN
     Indication: Diabetes mellitus
     Dates: start: 20200801, end: 20250826

REACTIONS (4)
  - Erythema [Recovering/Resolving]
  - Blister [Recovering/Resolving]
  - Pemphigoid [Recovering/Resolving]
  - Pemphigus [Recovering/Resolving]

NARRATIVE: CASE EVENT DATE: 20250528
